FAERS Safety Report 24329321 (Version 2)
Quarter: 2024Q3

REPORT INFORMATION
  Report Type: Report from Study
  Country: CA (occurrence: CA)
  Receive Date: 20240917
  Receipt Date: 20240925
  Transmission Date: 20241016
  Serious: Yes (Hospitalization)
  Sender: VERITY PHARMACEUTICALS
  Company Number: CA-VER-202400479

PATIENT
  Age: 81 Year
  Sex: Male

DRUGS (5)
  1. TRELSTAR [Suspect]
     Active Substance: TRIPTORELIN PAMOATE
     Indication: Prostate cancer
     Dosage: 11.25 MILLIGRAMS ONCE EVERY 03 MONTHS POWDER FOR PROLONGED-RELEASE SUSPENSION FOR INJECTION
     Route: 030
     Dates: start: 20230517, end: 20230517
  2. TRELSTAR [Suspect]
     Active Substance: TRIPTORELIN PAMOATE
     Indication: Prostate cancer
     Dosage: 11.25MG FOR EVERY 3 MONTHS POWDER FOR  PROLONGED-RELEASE SUSPENSION FOR INJECT
     Route: 030
     Dates: start: 20230310, end: 20230310
  3. TRELSTAR [Suspect]
     Active Substance: TRIPTORELIN PAMOATE
     Indication: Prostate cancer
     Dosage: START DATE: 18-AUG-2023??11.25MG ONCE EVERY 3 MONTHS POWDER FOR PROLONGED-RELEASE SUSPENSION FOR INJ
     Route: 030
     Dates: end: 20230818
  4. TRELSTAR [Suspect]
     Active Substance: TRIPTORELIN PAMOATE
     Indication: Prostate cancer
     Dosage: START DATE: 22-APR-2024??11.25MG ONCE EVERY 3 MONTHS POWDER FOR PROLONGED-RELEASE SUSPENSION FOR INJ
     Route: 030
     Dates: end: 20240422
  5. TRELSTAR [Suspect]
     Active Substance: TRIPTORELIN PAMOATE
     Indication: Prostate cancer
     Dosage: START DATE: 23-JAN-2024??11.25MG ONCE EVERY 3 MONTHS POWDER FOR PROLONGED-RELEASE SUSPENSION FOR INJ
     Route: 030
     Dates: end: 20240123

REACTIONS (4)
  - Inappropriate schedule of product administration [Recovered/Resolved]
  - Product dose omission issue [Not Recovered/Not Resolved]
  - Accident [Recovering/Resolving]
  - Malaise [Unknown]

NARRATIVE: CASE EVENT DATE: 20230517
